FAERS Safety Report 21620637 (Version 5)
Quarter: 2023Q1

REPORT INFORMATION
  Report Type: Report from Study
  Country: CA (occurrence: CA)
  Receive Date: 20221121
  Receipt Date: 20230310
  Transmission Date: 20230417
  Serious: Yes (Hospitalization, Other)
  Sender: FDA-Public Use
  Company Number: CA-002147023-NVSC2022CA258778

PATIENT
  Age: 44 Year
  Sex: Male

DRUGS (4)
  1. ELTROMBOPAG OLAMINE [Suspect]
     Active Substance: ELTROMBOPAG OLAMINE
     Indication: Immune thrombocytopenia
     Dosage: 50 MG, QD
     Route: 048
     Dates: start: 20221117
  2. ELTROMBOPAG OLAMINE [Suspect]
     Active Substance: ELTROMBOPAG OLAMINE
     Dosage: 75 MG, QD
     Route: 048
     Dates: start: 20221117
  3. ENOXAPARIN [Concomitant]
     Active Substance: ENOXAPARIN
     Indication: Product used for unknown indication
     Dosage: UNK UNK, BID (TWICE A DAY)
     Route: 065
  4. HEPARIN [Concomitant]
     Active Substance: HEPARIN SODIUM
     Indication: Product used for unknown indication
     Dosage: UNK
     Route: 042

REACTIONS (10)
  - Endocarditis [Unknown]
  - Immune thrombocytopenia [Unknown]
  - Gastric haemorrhage [Unknown]
  - Illness [Unknown]
  - Haemoglobin decreased [Unknown]
  - Haematoma [Unknown]
  - Somnolence [Unknown]
  - Fatigue [Unknown]
  - Infection [Unknown]
  - Platelet count decreased [Unknown]
